FAERS Safety Report 11125908 (Version 12)
Quarter: 2016Q2

REPORT INFORMATION
  Report Type: Spontaneous
  Country: US (occurrence: US)
  Receive Date: 20150520
  Receipt Date: 20160630
  Transmission Date: 20160815
  Serious: Yes (Hospitalization)
  Sender: FDA-Public Use
  Company Number: US-GLAXOSMITHKLINE-US2015GSK068147

PATIENT
  Sex: Female
  Weight: 97.52 kg

DRUGS (14)
  1. FLOLAN [Suspect]
     Active Substance: EPOPROSTENOL SODIUM
     Dosage: 14 NG/KG/MIN
     Route: 042
  2. FLOLAN [Suspect]
     Active Substance: EPOPROSTENOL SODIUM
     Dosage: 18 NG/KG/MIN (CONC: 30,000 NG/ML, PUMP RATE: 66 ML/DAY, VAIL STRENGTH:1.5)
  3. FLOLAN [Suspect]
     Active Substance: EPOPROSTENOL SODIUM
     Dosage: 19 NG/KG/MIN, CONTINUOUSLY
     Dates: start: 20150518
  4. ADCIRCA [Concomitant]
     Active Substance: TADALAFIL
  5. TYVASO [Suspect]
     Active Substance: TREPROSTINIL
     Indication: PRODUCT USED FOR UNKNOWN INDICATION
     Dosage: UNK
     Route: 065
     Dates: end: 201505
  6. FLOLAN [Suspect]
     Active Substance: EPOPROSTENOL SODIUM
     Dosage: 22 NG/KG/MIN, CO
     Dates: start: 20150518
  7. FLOLAN [Suspect]
     Active Substance: EPOPROSTENOL SODIUM
     Indication: PULMONARY ARTERIAL HYPERTENSION
     Dosage: 2 NG/KG/MIN
     Route: 042
     Dates: start: 20150518
  8. FLOLAN [Suspect]
     Active Substance: EPOPROSTENOL SODIUM
     Dosage: 18 NG/KG/MIN (CONC: 30,000 NG/ML, PUMP RATE: 66 ML/DAY, VIAL STRENGTH:1.5)
     Dates: start: 20150518
  9. FLOLAN [Suspect]
     Active Substance: EPOPROSTENOL SODIUM
     Dosage: 20 NG/KG/MIN, CONTINOUSLY
     Dates: start: 20150518
  10. FLOLAN [Suspect]
     Active Substance: EPOPROSTENOL SODIUM
     Dosage: UNK, CO
     Dates: start: 20150518
  11. FLOLAN [Suspect]
     Active Substance: EPOPROSTENOL SODIUM
     Dosage: 17 NG/KG/MIN (CONC: 30,000 NG/ML, PUMP RATE: 62 ML/DAY)
     Route: 042
  12. FLOLAN [Suspect]
     Active Substance: EPOPROSTENOL SODIUM
     Dosage: 19 NG/KG/MIN, CONTINUOUSLY
     Dates: start: 20150518
  13. FLOLAN [Suspect]
     Active Substance: EPOPROSTENOL SODIUM
     Dosage: 19 NG/KG/MIN CONTINUOUS
     Route: 042
     Dates: start: 20150518
  14. WARFARIN [Concomitant]
     Active Substance: WARFARIN

REACTIONS (22)
  - Bacterial infection [Unknown]
  - Arthralgia [Unknown]
  - Infection [Unknown]
  - Pain in jaw [Recovered/Resolved]
  - Pruritus [Unknown]
  - Skin injury [Unknown]
  - Wound secretion [Unknown]
  - Dizziness [Not Recovered/Not Resolved]
  - Gastrointestinal disorder [Not Recovered/Not Resolved]
  - Catheter removal [Unknown]
  - Arthropathy [Unknown]
  - Complication associated with device [Unknown]
  - Nausea [Recovered/Resolved]
  - Weight decreased [Not Recovered/Not Resolved]
  - Arthritis [Unknown]
  - Muscle spasms [Unknown]
  - Emergency care [Unknown]
  - Bone disorder [Unknown]
  - Diarrhoea [Unknown]
  - Weight decreased [Unknown]
  - Catheter site inflammation [Unknown]
  - Anxiety [Unknown]
